FAERS Safety Report 9781379 (Version 1)
Quarter: 2013Q4

REPORT INFORMATION
  Report Type: Spontaneous
  Country: US (occurrence: None)
  Receive Date: 20131223
  Receipt Date: 20131223
  Transmission Date: 20140711
  Serious: Yes (Life-Threatening, Hospitalization)
  Sender: FDA-Public Use
  Company Number: None

PATIENT
  Age: 70 Year
  Sex: Male
  Weight: 117 kg

DRUGS (1)
  1. RIVAROXABAN [Suspect]
     Indication: ATRIAL FIBRILLATION
     Dosage: 1 PILL, QD, ORAL
     Dates: start: 20131021, end: 20131105

REACTIONS (4)
  - Cardiac tamponade [None]
  - Pericardial haemorrhage [None]
  - Hypotension [None]
  - Respiratory distress [None]
